FAERS Safety Report 10634854 (Version 2)
Quarter: 2015Q1

REPORT INFORMATION
  Report Type: Spontaneous
  Country: IT (occurrence: IT)
  Receive Date: 20141205
  Receipt Date: 20150113
  Transmission Date: 20150720
  Serious: Yes (Other)
  Sender: FDA-Public Use
  Company Number: IT-PFIZER INC-2014333562

PATIENT
  Age: 48 Year
  Sex: Male

DRUGS (10)
  1. BENTELAN [Suspect]
     Active Substance: BETAMETHASONE SODIUM PHOSPHATE
     Indication: BACK PAIN
     Dosage: 4 MG, DAILY
     Route: 030
     Dates: start: 20141124, end: 20141130
  2. BELIMUMAB [Concomitant]
     Active Substance: BELIMUMAB
  3. BRETARIS GENUAIR [Concomitant]
     Indication: ASTHMA
  4. PLAQUENIL [Concomitant]
     Active Substance: HYDROXYCHLOROQUINE SULFATE
  5. DEPALGOS [Suspect]
     Active Substance: ACETAMINOPHEN\OXYCODONE HYDROCHLORIDE
     Indication: BACK PAIN
     Dosage: 660 MG, DAILY
     Route: 048
     Dates: start: 20141124, end: 20141130
  6. DIBASE [Concomitant]
     Active Substance: CHOLECALCIFEROL
  7. MYCOPHENOLATE MOFETIL. [Concomitant]
     Active Substance: MYCOPHENOLATE MOFETIL
  8. LANSOPRAZOLE. [Concomitant]
     Active Substance: LANSOPRAZOLE
  9. LYRICA [Suspect]
     Active Substance: PREGABALIN
     Indication: BACK PAIN
     Dosage: 150 MG, DAILY
     Route: 048
     Dates: start: 20141117, end: 20141130
  10. HIROBRIZ BREEZHALER [Concomitant]
     Active Substance: INDACATEROL MALEATE
     Indication: ASTHMA

REACTIONS (2)
  - Condition aggravated [Recovering/Resolving]
  - Systemic lupus erythematosus [Recovering/Resolving]

NARRATIVE: CASE EVENT DATE: 20141128
